FAERS Safety Report 4444157-5 (Version None)
Quarter: 2004Q3

REPORT INFORMATION
  Report Type: 
  Country: None (occurrence: None)
  Receive Date: 20040902
  Receipt Date: 20040816
  Transmission Date: 20050211
  Serious: Yes (Hospitalization, Other)
  Sender: FDA-Public Use
  Company Number: US_0408104874

PATIENT
  Age: 70 Year
  Sex: Male
  Weight: 105 kg

DRUGS (1)
  1. HUMULIN N [Suspect]
     Indication: DIABETES MELLITUS
     Dosage: 43 U DAY
     Dates: start: 20000101

REACTIONS (6)
  - BODY HEIGHT DECREASED [None]
  - CORONARY ARTERY OCCLUSION [None]
  - DECUBITUS ULCER [None]
  - DIFFICULTY IN WALKING [None]
  - HYPERTENSION [None]
  - MYOCARDIAL INFARCTION [None]
